FAERS Safety Report 17478046 (Version 3)
Quarter: 2020Q3

REPORT INFORMATION
  Report Type: Spontaneous
  Country: US (occurrence: US)
  Receive Date: 20200229
  Receipt Date: 20200923
  Transmission Date: 20201102
  Serious: Yes (Other)
  Sender: FDA-Public Use
  Company Number: US-AUROBINDO-AUR-APL-2020-010275

PATIENT
  Age: 83 Year
  Sex: Female
  Weight: 68 kg

DRUGS (6)
  1. OMEPRAZOLE DELAYED?RELEASE CAPSULES USP 20MG [Suspect]
     Active Substance: OMEPRAZOLE
     Indication: HELICOBACTER INFECTION
     Dosage: UNK UNK, TWO TIMES A DAY
     Route: 065
     Dates: start: 20200112, end: 20200122
  2. VALIUM [Concomitant]
     Active Substance: DIAZEPAM
     Indication: THERAPEUTIC NERVE ABLATION
     Dosage: ONE AND HALF DOSE
     Route: 065
  3. DOFETILIDE. [Concomitant]
     Active Substance: DOFETILIDE
     Indication: HAEMORRHAGE
     Dosage: UNK
     Route: 065
     Dates: start: 201909
  4. METRONIDAZOLE. [Suspect]
     Active Substance: METRONIDAZOLE
     Indication: HELICOBACTER INFECTION
     Dosage: UNK
     Route: 065
  5. DOFETILIDE. [Concomitant]
     Active Substance: DOFETILIDE
     Indication: PRODUCT USED FOR UNKNOWN INDICATION
     Dosage: 180 MILLIGRAM, TWO TIMES A DAY
     Route: 065
     Dates: start: 201908
  6. DOXYCYCLINE. [Concomitant]
     Active Substance: DOXYCYCLINE
     Indication: HAEMORRHAGE
     Dosage: UNK
     Route: 065

REACTIONS (8)
  - Heart rate increased [Unknown]
  - Near death experience [Unknown]
  - Sleep disorder [Unknown]
  - Pain [Unknown]
  - Tachycardia [Unknown]
  - Atrial fibrillation [Recovered/Resolved]
  - Blood pressure increased [Unknown]
  - Contraindicated product administered [Unknown]

NARRATIVE: CASE EVENT DATE: 20200116
